FAERS Safety Report 20758108 (Version 4)
Quarter: 2022Q3

REPORT INFORMATION
  Report Type: Report from Study
  Country: BE (occurrence: BE)
  Receive Date: 20220427
  Receipt Date: 20220705
  Transmission Date: 20221026
  Serious: Yes (Hospitalization, Other)
  Sender: FDA-Public Use
  Company Number: BE-BAYER-2022A049529

PATIENT
  Age: 80 Year
  Sex: Female

DRUGS (1)
  1. STIVARGA [Suspect]
     Active Substance: REGORAFENIB
     Indication: Hepatocellular carcinoma
     Dosage: 120 MG, QD
     Route: 048
     Dates: start: 20211010, end: 20220624

REACTIONS (8)
  - Hepatocellular carcinoma [Not Recovered/Not Resolved]
  - Varices oesophageal [Recovered/Resolved]
  - Tachycardia [Recovered/Resolved]
  - Anaemia [Recovered/Resolved]
  - Nausea [Recovered/Resolved]
  - Asthenia [Recovered/Resolved]
  - Hordeolum [Not Recovered/Not Resolved]
  - Anaemia [Not Recovered/Not Resolved]

NARRATIVE: CASE EVENT DATE: 20220401
